FAERS Safety Report 8402988-0 (Version None)
Quarter: 2012Q2

REPORT INFORMATION
  Report Type: 
  Country: None (occurrence: None)
  Receive Date: 20120601
  Receipt Date: 20120522
  Transmission Date: 20120825
  Serious: Yes (Other)
  Sender: FDA-Public Use
  Company Number: US-ABBOTT-12P-163-0938371-00

PATIENT
  Sex: Male
  Weight: 102.6 kg

DRUGS (9)
  1. HUMIRA [Suspect]
     Indication: PSORIASIS
  2. INSULIN [Suspect]
     Indication: DIABETES MELLITUS
  3. NAPROXEN [Concomitant]
     Indication: RHEUMATOID ARTHRITIS
  4. UNKNOWN DIABETES MEDICATION [Concomitant]
     Indication: DIABETES MELLITUS
  5. ZOCOR [Concomitant]
     Indication: BLOOD CHOLESTEROL INCREASED
  6. HUMIRA [Suspect]
     Indication: PSORIATIC ARTHROPATHY
     Dates: start: 20070101
  7. METFORMIN HCL [Concomitant]
     Indication: DIABETES MELLITUS
  8. LISINOPRIL [Concomitant]
     Indication: HYPERTENSION
  9. VITAMIN TAB [Concomitant]
     Indication: VITAMIN SUPPLEMENTATION

REACTIONS (8)
  - BLOOD GLUCOSE DECREASED [None]
  - JOINT LAXITY [None]
  - PAIN IN EXTREMITY [None]
  - BLOOD TEST ABNORMAL [None]
  - ARTHRALGIA [None]
  - ARTHRITIS [None]
  - OSTEOARTHRITIS [None]
  - EXOSTOSIS [None]
